FAERS Safety Report 24206067 (Version 1)
Quarter: 2024Q3

REPORT INFORMATION
  Report Type: Spontaneous
  Country: US (occurrence: US)
  Receive Date: 20240813
  Receipt Date: 20240813
  Transmission Date: 20241016
  Serious: Yes (Other)
  Sender: PERRIGO
  Company Number: US-PERRIGO-24US007410

PATIENT
  Age: 59 Year
  Sex: Female

DRUGS (1)
  1. POLYETHYLENE GLYCOL 3350 [Suspect]
     Active Substance: POLYETHYLENE GLYCOL 3350
     Indication: Medical procedure
     Dosage: 1 TBSP MIXED WITH 8 OUNCES LIQUID, TID
     Route: 048
     Dates: start: 20240801, end: 20240801

REACTIONS (4)
  - Rectal haemorrhage [Unknown]
  - Abdominal distension [Unknown]
  - Regurgitation [Unknown]
  - Off label use [Unknown]

NARRATIVE: CASE EVENT DATE: 20240801
